FAERS Safety Report 8310030-5 (Version None)
Quarter: 2012Q2

REPORT INFORMATION
  Report Type: 
  Country: None (occurrence: None)
  Receive Date: 20120423
  Receipt Date: 20120406
  Transmission Date: 20120825
  Serious: No
  Sender: FDA-Public Use
  Company Number: C-12-023

PATIENT
  Sex: Female

DRUGS (1)
  1. PHENTERMINE HYDROCHLORIDE [Suspect]

REACTIONS (1)
  - DRUG INEFFECTIVE [None]
